FAERS Safety Report 13232816 (Version 1)
Quarter: 2017Q1

REPORT INFORMATION
  Report Type: Spontaneous
  Country: GR (occurrence: GR)
  Receive Date: 20170214
  Receipt Date: 20170214
  Transmission Date: 20170428
  Serious: Yes (Death)
  Sender: FDA-Public Use
  Company Number: GR-IMPAX LABORATORIES, INC-2017-IPXL-00267

PATIENT
  Age: 52 Year
  Sex: Male

DRUGS (4)
  1. MIRTAZAPINE ODT [Suspect]
     Active Substance: MIRTAZAPINE
     Indication: PRODUCT USED FOR UNKNOWN INDICATION
     Dosage: UNK
     Route: 065
  2. DELTAMETHRIN [Interacting]
     Active Substance: DELTAMETHRIN
     Indication: COMPLETED SUICIDE
     Dosage: 1.5% W/V, TOTAL VOLUME 160 ML
     Route: 065
  3. CYPERMETHRIN [Interacting]
     Active Substance: CYPERMETHRIN
     Indication: COMPLETED SUICIDE
     Dosage: 6% W/V TOTAL VOLUME 50 ML
     Route: 065
  4. ALCOHOL. [Interacting]
     Active Substance: ALCOHOL
     Indication: PRODUCT USED FOR UNKNOWN INDICATION
     Dosage: UNK
     Route: 065

REACTIONS (4)
  - Drug level increased [Fatal]
  - Drug interaction [Fatal]
  - Completed suicide [Fatal]
  - Poisoning deliberate [Fatal]
